FAERS Safety Report 21326658 (Version 1)
Quarter: 2022Q3

REPORT INFORMATION
  Report Type: Spontaneous
  Country: JP (occurrence: JP)
  Receive Date: 20220913
  Receipt Date: 20220913
  Transmission Date: 20221027
  Serious: Yes (Other)
  Sender: FDA-Public Use
  Company Number: JP-BAYER-2022A125101

PATIENT
  Sex: Male

DRUGS (1)
  1. EYLEA [Suspect]
     Active Substance: AFLIBERCEPT
     Indication: Retinal vein occlusion
     Dosage: SOLUTION FOR INJECTION IN PRE-FILLED SYRINGE, STRENGTH: 40MG/ML

REACTIONS (1)
  - Retinal exudates [Not Recovered/Not Resolved]
